FAERS Safety Report 11296081 (Version 1)
Quarter: 2015Q3

REPORT INFORMATION
  Report Type: Spontaneous
  Country: US (occurrence: None)
  Receive Date: 20150722
  Receipt Date: 20150722
  Transmission Date: 20151125
  Serious: Yes (Hospitalization)
  Sender: FDA-Public Use
  Company Number: None

PATIENT
  Age: 47 Year
  Sex: Female
  Weight: 110 kg

DRUGS (5)
  1. HALOPERIDOL 5MG [Suspect]
     Active Substance: HALOPERIDOL
     Indication: PSYCHOTIC DISORDER
     Dosage: VARIED
     Dates: start: 20150327, end: 20150409
  2. HALOPERIDOL 5MG [Suspect]
     Active Substance: HALOPERIDOL
     Indication: AGGRESSION
     Dosage: VARIED
     Dates: start: 20150327, end: 20150409
  3. MULTIVITAMIN [Concomitant]
     Active Substance: VITAMINS
  4. HALOPERIDOL 5MG [Suspect]
     Active Substance: HALOPERIDOL
     Indication: AGITATION
     Dosage: VARIED
     Dates: start: 20150327, end: 20150409
  5. LISINOPRIL. [Concomitant]
     Active Substance: LISINOPRIL

REACTIONS (7)
  - Urinary incontinence [None]
  - Hyperhidrosis [None]
  - Tremor [None]
  - Gait disturbance [None]
  - Mydriasis [None]
  - Neuroleptic malignant syndrome [None]
  - Fall [None]

NARRATIVE: CASE EVENT DATE: 20150410
